FAERS Safety Report 18544422 (Version 6)
Quarter: 2022Q2

REPORT INFORMATION
  Report Type: Spontaneous
  Country: JP (occurrence: JP)
  Receive Date: 20201125
  Receipt Date: 20220624
  Transmission Date: 20220721
  Serious: Yes (Hospitalization, Other)
  Sender: FDA-Public Use
  Company Number: JP-VIIVHC-JP2020JPN231900AA

PATIENT

DRUGS (5)
  1. TIVICAY [Suspect]
     Active Substance: DOLUTEGRAVIR SODIUM
     Indication: HIV infection
     Dosage: 50 MG, QD
     Route: 048
     Dates: start: 20200718
  2. DESCOVY [Concomitant]
     Active Substance: EMTRICITABINE\TENOFOVIR ALAFENAMIDE FUMARATE
     Indication: HIV infection
     Dosage: 1 DF, QD
     Dates: start: 20200718
  3. BAKTAR TABLET [Concomitant]
     Indication: Antifungal prophylaxis
     Dosage: 1 DF, QD
     Dates: start: 20200522
  4. ITRIZOLE (ITRACONAZOLE) [Concomitant]
     Indication: Oesophageal candidiasis
     Dosage: UNK, PRN
     Dates: start: 20200522
  5. AZITHROMYCIN DIHYDRATE [Concomitant]
     Active Substance: AZITHROMYCIN DIHYDRATE
     Indication: Opportunistic infection prophylaxis
     Dosage: UNK
     Dates: start: 20200522, end: 20200718

REACTIONS (3)
  - Immune reconstitution inflammatory syndrome [Unknown]
  - Lymphoma [Recovering/Resolving]
  - Abdominal distension [Unknown]

NARRATIVE: CASE EVENT DATE: 20201001
